FAERS Safety Report 18731958 (Version 2)
Quarter: 2021Q1

REPORT INFORMATION
  Report Type: Spontaneous
  Country: US (occurrence: US)
  Receive Date: 20210112
  Receipt Date: 20210208
  Transmission Date: 20210419
  Serious: Yes (Other)
  Sender: FDA-Public Use
  Company Number: US-PFIZER INC-2021013893

PATIENT
  Age: 65 Year
  Sex: Female

DRUGS (3)
  1. LETROZOLE. [Suspect]
     Active Substance: LETROZOLE
     Indication: METASTATIC NEOPLASM
     Dosage: UNK
     Dates: start: 20180929
  2. IBRANCE [Suspect]
     Active Substance: PALBOCICLIB
     Indication: METASTATIC NEOPLASM
     Dosage: 100 MG
     Dates: start: 20180929
  3. IBRANCE [Suspect]
     Active Substance: PALBOCICLIB
     Dosage: 75 MG
     Dates: start: 20190403

REACTIONS (9)
  - Nausea [Unknown]
  - White blood cell count decreased [Unknown]
  - Cytopenia [Unknown]
  - Paraesthesia [Unknown]
  - Oral pain [Unknown]
  - Fatigue [Unknown]
  - Hot flush [Unknown]
  - Headache [Unknown]
  - Abdominal discomfort [Unknown]

NARRATIVE: CASE EVENT DATE: 2018
